FAERS Safety Report 6551479-0 (Version None)
Quarter: 2010Q1

REPORT INFORMATION
  Report Type: 
  Country: None (occurrence: None)
  Receive Date: 20100121
  Receipt Date: 20081118
  Transmission Date: 20100710
  Serious: Yes (Other)
  Sender: FDA-Public Use
  Company Number: 08H-163-0315207-00

PATIENT
  Age: 5 Year
  Sex: Female
  Weight: 17.7 kg

DRUGS (1)
  1. VANCOMYCIN HCL [Suspect]
     Indication: MASTOIDITIS
     Dosage: 180 MG, EVERY 6 HOURS, INTRAVENOUS
     Route: 042
     Dates: start: 20081001

REACTIONS (3)
  - ANAPHYLACTIC REACTION [None]
  - PYREXIA [None]
  - RASH [None]
